FAERS Safety Report 5663058-8 (Version None)
Quarter: 2008Q1

REPORT INFORMATION
  Report Type: 
  Country: None (occurrence: None)
  Receive Date: 20080313
  Receipt Date: 20080303
  Transmission Date: 20080703
  Serious: Yes (Hospitalization)
  Sender: FDA-Public Use
  Company Number: FR-PFIZER INC-2008020370

PATIENT
  Sex: Male

DRUGS (5)
  1. TRIFLUCAN [Suspect]
     Indication: SEPTIC SHOCK
     Route: 042
     Dates: start: 20071031, end: 20071113
  2. CORDARONE [Suspect]
     Indication: ATRIAL FIBRILLATION
     Route: 042
     Dates: start: 20071112, end: 20071113
  3. TIENAM [Concomitant]
  4. CIFLOX [Concomitant]
  5. ZYVOX [Concomitant]

REACTIONS (1)
  - HYPOTENSION [None]
